FAERS Safety Report 11707899 (Version 1)
Quarter: 2015Q4

REPORT INFORMATION
  Report Type: Spontaneous
  Country: US (occurrence: US)
  Receive Date: 20151104
  Receipt Date: 20151104
  Transmission Date: 20160304
  Serious: No
  Sender: FDA-Public Use
  Company Number: US-ELI_LILLY_AND_COMPANY-US201102006513

PATIENT
  Sex: Female

DRUGS (2)
  1. FORTEO [Suspect]
     Active Substance: TERIPARATIDE
     Indication: OSTEOPOROSIS
     Dosage: UNK, UNKNOWN
     Route: 065
  2. CALCIUM [Concomitant]
     Active Substance: CALCIUM

REACTIONS (6)
  - Insomnia [Unknown]
  - Muscle spasms [Recovered/Resolved]
  - Injection site pain [Unknown]
  - Muscle spasms [Unknown]
  - Injection site erythema [Recovered/Resolved]
  - Injection site erythema [Unknown]
